FAERS Safety Report 6661390-2 (Version None)
Quarter: 2010Q1

REPORT INFORMATION
  Report Type: 
  Country: None (occurrence: None)
  Receive Date: 20100331
  Receipt Date: 20100325
  Transmission Date: 20100710
  Serious: Yes (Other)
  Sender: FDA-Public Use
  Company Number: CHPA2010JP05519

PATIENT
  Age: 73 Year
  Sex: Female

DRUGS (12)
  1. GLYSENNID [Suspect]
     Indication: CONSTIPATION
     Dosage: UNK,UNK
     Route: 048
  2. RISPERDAL [Concomitant]
     Dosage: UNK,UNK
     Route: 048
  3. ROHYPNOL [Concomitant]
     Dosage: UNK,UNK
     Route: 048
  4. LENDORMIN [Concomitant]
     Dosage: UNK,UNK
     Route: 048
  5. TETRAMIDE [Concomitant]
     Dosage: UNK,UNK
     Route: 048
  6. ADALAT [Concomitant]
     Dosage: UNK,UNK
     Route: 048
  7. RENIVACE [Concomitant]
     Dosage: UNK,UNK
     Route: 048
  8. OMEPRAL [Concomitant]
     Dosage: UNK,UNK
     Route: 048
  9. THEO-DUR [Concomitant]
     Dosage: UNK,UNK
     Route: 048
  10. MUCODYNE [Concomitant]
     Dosage: UNK,UNK
     Route: 048
  11. MUCOSOLVAN [Concomitant]
     Dosage: UNK,UNK
     Route: 048
  12. ^FEROTYM^ [Concomitant]
     Route: 048

REACTIONS (1)
  - LUNG DISORDER [None]
